FAERS Safety Report 4816515-8 (Version None)
Quarter: 2005Q4

REPORT INFORMATION
  Report Type: 
  Country: None (occurrence: None)
  Receive Date: 20051101
  Receipt Date: 20051020
  Transmission Date: 20060501
  Serious: Yes (Other)
  Sender: FDA-Public Use
  Company Number: PHBS2005GB15514

PATIENT
  Age: 34 Year
  Sex: Female

DRUGS (3)
  1. CYCLOSPORINE [Suspect]
     Indication: PUSTULAR PSORIASIS
     Dosage: 2.5 MG/KG/DAY
  2. CYCLOSPORINE [Suspect]
     Dosage: 3 MG/KG/DAY
  3. PREDNISOLONE [Suspect]
     Indication: PUSTULAR PSORIASIS
     Dosage: 40 MG/DAY

REACTIONS (4)
  - DRUG EXPOSURE DURING PREGNANCY [None]
  - NEUTROPHILIA [None]
  - PREMATURE BABY [None]
  - PREMATURE RUPTURE OF MEMBRANES [None]
